FAERS Safety Report 9761391 (Version 1)
Quarter: 2013Q4

REPORT INFORMATION
  Report Type: Spontaneous
  Country: US (occurrence: US)
  Receive Date: 20131216
  Receipt Date: 20131216
  Transmission Date: 20140711
  Serious: No
  Sender: FDA-Public Use
  Company Number: US-PFIZER INC-2013354131

PATIENT
  Sex: Female

DRUGS (3)
  1. PREMARIN [Suspect]
     Dosage: 0.5 G, 5X/WEEK
     Route: 067
  2. PREMARIN [Suspect]
     Dosage: 0.5G, 3X/WEEK
     Route: 067
  3. PREMARIN [Suspect]
     Dosage: 0.5 G, 2X/WEEK
     Route: 067

REACTIONS (2)
  - Hot flush [Unknown]
  - Intentional drug misuse [Unknown]
